FAERS Safety Report 8019421-3 (Version None)
Quarter: 2012Q1

REPORT INFORMATION
  Report Type: 
  Country: None (occurrence: None)
  Receive Date: 20120103
  Receipt Date: 20111223
  Transmission Date: 20120608
  Serious: Yes (Hospitalization)
  Sender: FDA-Public Use
  Company Number: PHHY2010US25768

PATIENT
  Sex: Male

DRUGS (11)
  1. ALENDRONATE SODIUM [Concomitant]
  2. EXJADE [Suspect]
     Indication: THALASSAEMIA
     Dosage: 2500 MG, UNK
     Route: 048
     Dates: end: 20111128
  3. WARFARIN SODIUM [Concomitant]
  4. CALCIUM ACETATE [Concomitant]
  5. VITAMIN B COMPLEX CAP [Concomitant]
  6. DIGOXIN [Concomitant]
  7. METOPROLOL [Concomitant]
  8. PREDNISONE [Concomitant]
  9. EXJADE [Suspect]
     Indication: IRON OVERLOAD
     Dosage: 2000 MG DAILY
     Route: 048
     Dates: start: 20091221
  10. VITAMIN D [Concomitant]
  11. OMEPRAZOLE [Concomitant]

REACTIONS (7)
  - INFECTION [None]
  - PNEUMONIA [None]
  - HYPOTENSION [None]
  - MALAISE [None]
  - HAEMOPTYSIS [None]
  - BODY TEMPERATURE INCREASED [None]
  - STAPHYLOCOCCAL INFECTION [None]
